FAERS Safety Report 7129478-X (Version None)
Quarter: 2010Q4

REPORT INFORMATION
  Report Type: 
  Country: None (occurrence: None)
  Receive Date: 20101130
  Receipt Date: 20101103
  Transmission Date: 20110411
  Serious: Yes (Other)
  Sender: FDA-Public Use
  Company Number: GR-ASTRAZENECA-2010SE56074

PATIENT
  Age: 47 Year
  Sex: Female
  Weight: 62 kg

DRUGS (3)
  1. ARIMIDEX [Suspect]
     Indication: BREAST CANCER
     Route: 048
     Dates: start: 20091014, end: 20091216
  2. ARIMIDEX [Suspect]
     Route: 048
     Dates: start: 20091226, end: 20100310
  3. UNSPECIFIED IRON SUPPLEMENT [Concomitant]

REACTIONS (1)
  - DRY EYE [None]
